FAERS Safety Report 25016124 (Version 1)
Quarter: 2025Q1

REPORT INFORMATION
  Report Type: Spontaneous
  Country: FR (occurrence: FR)
  Receive Date: 20250227
  Receipt Date: 20250227
  Transmission Date: 20250409
  Serious: Yes (Life-Threatening, Hospitalization)
  Sender: ROCHE
  Company Number: None

PATIENT
  Age: 37 Year
  Sex: Female
  Weight: 65 kg

DRUGS (69)
  1. VALGANCICLOVIR HYDROCHLORIDE [Suspect]
     Active Substance: VALGANCICLOVIR HYDROCHLORIDE
     Indication: Product used for unknown indication
     Dosage: VALGANCICLOVIR 450 MG: 2 TABLETS IN THE MORNING, UNTIL 12/07/24 INCLUSIVE
     Route: 065
     Dates: end: 20240712
  2. BACTRIM [Suspect]
     Active Substance: SULFAMETHOXAZOLE\TRIMETHOPRIM
     Indication: Product used for unknown indication
     Dosage: BACTRIM 400 + 80 MG: 1 TABLET IN THE MORNING, UNTIL 12/07/24 INCLUSIVE
     Route: 065
     Dates: end: 20240712
  3. ENVARSUS XR [Suspect]
     Active Substance: TACROLIMUS
     Indication: Prophylaxis against transplant rejection
     Dosage: IN THE MORNING, DOSE REDUCED
     Route: 048
     Dates: start: 20240606
  4. ENVARSUS XR [Suspect]
     Active Substance: TACROLIMUS
     Dosage: FINALLY BALANCED UNDER ENVARSUS 4 MG
     Route: 048
     Dates: start: 20240610
  5. MYCOPHENOLIC ACID [Suspect]
     Active Substance: MYCOPHENOLIC ACID
     Indication: Prophylaxis against transplant rejection
     Dosage: 2 TABLETS IN THE MORNING, 2 TABLETS IN THE EVENING
     Route: 048
     Dates: start: 20240606, end: 20240606
  6. MYCOPHENOLIC ACID [Suspect]
     Active Substance: MYCOPHENOLIC ACID
     Dosage: 1 TABLETS IN THE MORNING, 1 TABLETS IN THE EVENING/DOSE REDUCED
     Route: 048
     Dates: start: 20240607
  7. THYMOGLOBULINE [Suspect]
     Active Substance: LAPINE T-LYMPHOCYTE IMMUNE GLOBULIN
     Indication: Prophylaxis against transplant rejection
     Route: 042
     Dates: start: 20240607, end: 20240608
  8. THYMOGLOBULINE [Suspect]
     Active Substance: LAPINE T-LYMPHOCYTE IMMUNE GLOBULIN
     Route: 042
     Dates: start: 20240613, end: 20240617
  9. PREDNISOLONE SODIUM METAZOATE [Suspect]
     Active Substance: PREDNISOLONE SODIUM METAZOATE
     Indication: Prophylaxis against transplant rejection
     Route: 048
     Dates: start: 20240608, end: 20240706
  10. PREDNISOLONE SODIUM METAZOATE [Suspect]
     Active Substance: PREDNISOLONE SODIUM METAZOATE
     Route: 048
     Dates: start: 20240707, end: 20240813
  11. PREDNISOLONE SODIUM METAZOATE [Suspect]
     Active Substance: PREDNISOLONE SODIUM METAZOATE
     Route: 048
     Dates: start: 20240813, end: 20241008
  12. PREDNISOLONE SODIUM METAZOATE [Suspect]
     Active Substance: PREDNISOLONE SODIUM METAZOATE
     Route: 048
     Dates: start: 20241009
  13. PREDNISONE [Suspect]
     Active Substance: PREDNISONE
     Indication: Proteinuria
     Route: 065
  14. PREDNISONE [Suspect]
     Active Substance: PREDNISONE
     Indication: Oedema peripheral
     Route: 065
  15. PREDNISONE [Suspect]
     Active Substance: PREDNISONE
     Route: 065
  16. PREDNISONE [Suspect]
     Active Substance: PREDNISONE
     Route: 065
  17. PREDNISONE [Suspect]
     Active Substance: PREDNISONE
     Route: 065
     Dates: start: 201011
  18. PREDNISONE [Suspect]
     Active Substance: PREDNISONE
     Route: 065
  19. PREDNISONE [Suspect]
     Active Substance: PREDNISONE
     Route: 065
  20. PREDNISONE [Suspect]
     Active Substance: PREDNISONE
     Dosage: CONTINUED
     Route: 065
     Dates: start: 201111
  21. PREDNISONE [Suspect]
     Active Substance: PREDNISONE
     Route: 065
     Dates: start: 20071002
  22. PREDNISONE [Suspect]
     Active Substance: PREDNISONE
     Dosage: NEW REDUCTION IN PREDNISONE TO 7.5 MG/DAY
     Route: 065
  23. PREDNISONE [Suspect]
     Active Substance: PREDNISONE
     Dosage: INCREASE IN CORTANCYL TO 10 MG PER DAY
     Route: 065
     Dates: start: 20081016
  24. PREDNISONE [Suspect]
     Active Substance: PREDNISONE
     Dosage: DECREASE IN PREDNISONE TO 5 MG/DAY
     Route: 065
     Dates: start: 20100323
  25. PREDNISONE [Suspect]
     Active Substance: PREDNISONE
     Dosage: DECREASE IN PREDNISONE TO 6 MG/DAY
     Route: 065
     Dates: start: 20090408
  26. PREDNISONE [Suspect]
     Active Substance: PREDNISONE
     Dosage: NEW INCREASE IN PREDNISONE TO 6 MG/DAY
     Route: 065
     Dates: start: 20100923
  27. PREDNISONE [Suspect]
     Active Substance: PREDNISONE
     Dosage: INCREASE IN PREDNISONE TO 15 MG/DAY
     Route: 065
     Dates: start: 20110204
  28. PREDNISONE [Suspect]
     Active Substance: PREDNISONE
     Dosage: CORTANCYL 6 MG/DAY
     Route: 065
     Dates: start: 20130407
  29. PREDNISONE [Suspect]
     Active Substance: PREDNISONE
     Dosage: UNDER 10 MG OF CORTANCYL
     Route: 065
  30. PREDNISONE [Suspect]
     Active Substance: PREDNISONE
     Route: 065
     Dates: start: 20160831
  31. PREDNISONE [Suspect]
     Active Substance: PREDNISONE
     Dosage: PREDNISONE 40 MG/DAY
     Route: 065
     Dates: start: 2020
  32. PREDNISONE [Suspect]
     Active Substance: PREDNISONE
     Dosage: CORTICOSTEROID THERAPY 5 MG/DAY
     Route: 065
     Dates: start: 20220811
  33. LEUCOVORIN CALCIUM [Suspect]
     Active Substance: LEUCOVORIN CALCIUM
     Indication: Product used for unknown indication
     Dosage: LEDERFOLINE 5 MG: 1 TABLET IN THE MORNING, UNTIL 12/07/24 INCLUSIVE
     Route: 065
     Dates: end: 20240712
  34. CELLCEPT [Concomitant]
     Active Substance: MYCOPHENOLATE MOFETIL
     Indication: Prophylaxis against transplant rejection
     Dosage: 2 TABLETS IN THE MORNING AND 2 TABLETS IN THE EVENING UNTIL 07/06 INCLUSIVE
     Route: 048
     Dates: end: 20240607
  35. CELLCEPT [Concomitant]
     Active Substance: MYCOPHENOLATE MOFETIL
     Route: 065
     Dates: start: 20070404
  36. CELLCEPT [Concomitant]
     Active Substance: MYCOPHENOLATE MOFETIL
     Route: 065
     Dates: start: 2008
  37. CELLCEPT [Concomitant]
     Active Substance: MYCOPHENOLATE MOFETIL
     Dosage: 1 TABLET IN THE MORNING AND EVENING FROM 07/07
     Route: 065
     Dates: end: 20240707
  38. PLAQUENIL [Concomitant]
     Active Substance: HYDROXYCHLOROQUINE SULFATE
     Indication: Systemic lupus erythematosus
     Route: 048
     Dates: start: 20130408, end: 20130408
  39. PLAQUENIL [Concomitant]
     Active Substance: HYDROXYCHLOROQUINE SULFATE
     Indication: Proteinuria
     Route: 048
     Dates: start: 20130409, end: 20241008
  40. PLAQUENIL [Concomitant]
     Active Substance: HYDROXYCHLOROQUINE SULFATE
     Indication: Oedema peripheral
     Route: 048
     Dates: start: 20241008, end: 20241008
  41. PLAQUENIL [Concomitant]
     Active Substance: HYDROXYCHLOROQUINE SULFATE
     Dosage: 2 TABLETS IN THE MORINNG/DOSE INCREASED
     Route: 048
     Dates: start: 20241009
  42. PLAQUENIL [Concomitant]
     Active Substance: HYDROXYCHLOROQUINE SULFATE
     Route: 065
     Dates: start: 20070102
  43. PLAQUENIL [Concomitant]
     Active Substance: HYDROXYCHLOROQUINE SULFATE
     Route: 065
     Dates: start: 20110204
  44. PLAQUENIL [Concomitant]
     Active Substance: HYDROXYCHLOROQUINE SULFATE
     Route: 065
     Dates: start: 20110204
  45. PLAQUENIL [Concomitant]
     Active Substance: HYDROXYCHLOROQUINE SULFATE
     Dosage: PLAQUENIL 400 MG/DAY
     Route: 065
     Dates: start: 20220202
  46. PLAQUENIL [Concomitant]
     Active Substance: HYDROXYCHLOROQUINE SULFATE
     Dosage: PLAQUENIL 400 MG 2 TABS/DAY
     Route: 065
  47. RAMIPRIL [Concomitant]
     Active Substance: RAMIPRIL
     Indication: Hypertension
     Route: 048
  48. PRAVASTATIN SODIUM [Concomitant]
     Active Substance: PRAVASTATIN SODIUM
     Indication: Hypercholesterolaemia
     Route: 048
  49. ATENOLOL [Concomitant]
     Active Substance: ATENOLOL
     Indication: Hypertension
     Route: 048
     Dates: start: 20220202
  50. AMLODIPINE [Concomitant]
     Active Substance: AMLODIPINE BESYLATE
     Indication: Hypertension
     Dosage: DOSE NOT CHANGED
     Route: 048
  51. AMLODIPINE [Concomitant]
     Active Substance: AMLODIPINE BESYLATE
     Route: 048
     Dates: start: 20220202
  52. KARDEGIC [Concomitant]
     Active Substance: ASPIRIN DL-LYSINE
     Dosage: 1 SACHET
     Route: 065
     Dates: start: 20240609
  53. TICAGRELOR [Concomitant]
     Active Substance: TICAGRELOR
     Indication: Product used for unknown indication
     Dosage: 1 TABLET MORNING AND EVENING
     Route: 065
  54. LANSOPRAZOLE [Concomitant]
     Active Substance: LANSOPRAZOLE
     Route: 065
  55. ATORVASTATIN [Concomitant]
     Active Substance: ATORVASTATIN
     Dosage: ATORVASTATIN 80 MG: 1 TABLET IN THE EVENING
     Route: 065
     Dates: start: 20240609
  56. BISOPROLOL [Concomitant]
     Active Substance: BISOPROLOL
     Indication: Product used for unknown indication
     Dosage: 1 TABLET IN THE EVENING
     Route: 065
     Dates: start: 20240609
  57. ARANESP [Concomitant]
     Active Substance: DARBEPOETIN ALFA
     Indication: Product used for unknown indication
     Dosage: ARANESP 30 UG: 1 SUBCUTANEOUS INJECTION PER WEEK
     Route: 058
  58. SODIUM BICARBONATE [Concomitant]
     Active Substance: SODIUM BICARBONATE
     Indication: Product used for unknown indication
     Dosage: SODIUM BICARBONATE 1 G: 1 CAPSULE MORNING, NOON AND EVENING
     Route: 065
  59. SIMVASTATIN [Concomitant]
     Active Substance: SIMVASTATIN
     Indication: Dyslipidaemia
     Route: 065
     Dates: start: 200704, end: 20100323
  60. Estrogen-progestin [Concomitant]
     Indication: Product used for unknown indication
     Route: 065
     Dates: start: 2007
  61. NEORAL [Concomitant]
     Active Substance: CYCLOSPORINE
     Indication: Oedema peripheral
     Dosage: CYCLOSPORINE 100 MG X 2 PER DAY
     Route: 065
     Dates: start: 2008
  62. NEORAL [Concomitant]
     Active Substance: CYCLOSPORINE
     Route: 065
     Dates: start: 20130407
  63. NEORAL [Concomitant]
     Active Substance: CYCLOSPORINE
     Route: 065
  64. NEORAL [Concomitant]
     Active Substance: CYCLOSPORINE
     Route: 065
  65. ALLOPURINOL [Concomitant]
     Active Substance: ALLOPURINOL
     Indication: Product used for unknown indication
     Route: 065
     Dates: start: 20161207
  66. ALDOMET [Concomitant]
     Active Substance: METHYLDOPA
     Indication: Hypertension
     Route: 065
  67. RITUXIMAB [Concomitant]
     Active Substance: RITUXIMAB
     Indication: Product used for unknown indication
     Route: 065
     Dates: start: 20220811
  68. RITUXIMAB [Concomitant]
     Active Substance: RITUXIMAB
     Route: 065
     Dates: start: 20221123
  69. COUMADIN [Concomitant]
     Active Substance: WARFARIN SODIUM
     Indication: Product used for unknown indication
     Route: 065
     Dates: start: 2022

REACTIONS (1)
  - Coronary artery disease [Not Recovered/Not Resolved]

NARRATIVE: CASE EVENT DATE: 20240609
